FAERS Safety Report 17236528 (Version 2)
Quarter: 2020Q1

REPORT INFORMATION
  Report Type: Report from Study
  Country: GT (occurrence: GT)
  Receive Date: 20200106
  Receipt Date: 20200122
  Transmission Date: 20200409
  Serious: Yes (Other)
  Sender: FDA-Public Use
  Company Number: NVSC2019GT083255

PATIENT
  Sex: Male
  Weight: 104.3 kg

DRUGS (6)
  1. EXFORGE HCT [Suspect]
     Active Substance: AMLODIPINE BESYLATE\HYDROCHLOROTHIAZIDE\VALSARTAN
     Indication: HYPERTENSION
     Dosage: UNK UNK, QD
     Route: 048
     Dates: start: 2016
  2. EXFORGE HCT [Suspect]
     Active Substance: AMLODIPINE BESYLATE\HYDROCHLOROTHIAZIDE\VALSARTAN
     Dosage: 05/160/12.5MG
     Route: 048
     Dates: start: 20191230
  3. EXFORGE HCT [Suspect]
     Active Substance: AMLODIPINE BESYLATE\HYDROCHLOROTHIAZIDE\VALSARTAN
     Dosage: 10/160/12.5MG
     Route: 048
     Dates: start: 2017
  4. HUMALOG MIX [Concomitant]
     Active Substance: INSULIN LISPRO
     Indication: DIABETES MELLITUS
     Dosage: UNK
     Route: 058
     Dates: start: 2016
  5. EXFORGE HCT [Suspect]
     Active Substance: AMLODIPINE BESYLATE\HYDROCHLOROTHIAZIDE\VALSARTAN
     Dosage: 10/160/12.5MG
     Route: 048
     Dates: start: 20191229
  6. EXFORGE HCT [Suspect]
     Active Substance: AMLODIPINE BESYLATE\HYDROCHLOROTHIAZIDE\VALSARTAN
     Dosage: (AMLODIPINE 5 MG, HYDROCHLOROTHIAZIDE 12.5 MG AND VALSARTAN 160 MG)
     Route: 048
     Dates: start: 20191217

REACTIONS (3)
  - Abdominal distension [Recovering/Resolving]
  - Strangulated hernia [Unknown]
  - Pain [Recovering/Resolving]
